FAERS Safety Report 19053567 (Version 1)
Quarter: 2021Q1

REPORT INFORMATION
  Report Type: Spontaneous
  Country: GB (occurrence: GB)
  Receive Date: 20210324
  Receipt Date: 20210324
  Transmission Date: 20210420
  Serious: Yes (Disabling)
  Sender: FDA-Public Use
  Company Number: GB-TEVA-2021-GB-1892267

PATIENT
  Age: 65 Year
  Sex: Female
  Weight: 86 kg

DRUGS (15)
  1. SALBUTAMOL [Concomitant]
     Active Substance: ALBUTEROL
     Dosage: 2 DOSAGE FORMS
     Dates: start: 20200805
  2. SENNA [Concomitant]
     Active Substance: SENNA LEAF\SENNOSIDES\SENNOSIDES A AND B
     Dosage: ONE OR TWO TO BE TAKEN AT NIGHT
     Dates: start: 20210127, end: 20210224
  3. SERTRALINE [Concomitant]
     Active Substance: SERTRALINE HYDROCHLORIDE
     Dosage: 1 DOSAGE FORMS DAILY;
     Dates: start: 20200805
  4. PREDNISOLONE. [Suspect]
     Active Substance: PREDNISOLONE
     Indication: ASTHMA
     Route: 048
     Dates: start: 20210126, end: 20210131
  5. ASPIRIN. [Concomitant]
     Active Substance: ASPIRIN
     Dosage: 1 DOSAGE FORMS DAILY;
     Dates: start: 20200805
  6. DUORESP SPIROMAX [Concomitant]
     Active Substance: BUDESONIDE\FORMOTEROL
     Dosage: 4 DOSAGE FORMS DAILY;
     Dates: start: 20200805
  7. FEXOFENADINE [Concomitant]
     Active Substance: FEXOFENADINE HYDROCHLORIDE
     Dosage: 1 DOSAGE FORMS DAILY;
     Dates: start: 20200805
  8. MONOMIL XL [Concomitant]
     Active Substance: ISOSORBIDE MONONITRATE
     Dosage: 1 DOSAGE FORMS DAILY; EACH MORNING AS BY HOSPITAL
     Dates: start: 20200805
  9. AMOXICILLIN. [Concomitant]
     Active Substance: AMOXICILLIN
     Indication: PROPHYLAXIS
     Dosage: 2 DOSAGE FORMS DAILY; (ONGOING PROPHYLAXIS)
     Dates: start: 20200911
  10. DOXYCYCLINE. [Concomitant]
     Active Substance: DOXYCYCLINE
     Dosage: TAKE TWO NOW THEN ONE DAILY FOR 4 DAYS
     Dates: start: 20210119, end: 20210124
  11. MONTELUKAST [Concomitant]
     Active Substance: MONTELUKAST SODIUM
     Dosage: 1 DOSAGE FORMS DAILY; AT NIGHT
     Dates: start: 20200805
  12. AMLODIPINE [Concomitant]
     Active Substance: AMLODIPINE BESYLATE
     Dosage: 1 DOSAGE FORMS DAILY;
     Dates: start: 20200805
  13. LEVOTHYROXINE. [Concomitant]
     Active Substance: LEVOTHYROXINE
     Dosage: 1 DOSAGE FORMS DAILY; EACH MORNING
     Dates: start: 20201009
  14. ROSUVASTATIN. [Concomitant]
     Active Substance: ROSUVASTATIN
     Dosage: 1 DOSAGE FORMS DAILY;
     Dates: start: 20200805
  15. ESOMEPRAZOLE. [Concomitant]
     Active Substance: ESOMEPRAZOLE MAGNESIUM
     Dosage: 4 DOSAGE FORMS DAILY;
     Dates: start: 20200805

REACTIONS (2)
  - Dizziness [Recovered/Resolved]
  - Presyncope [Recovered/Resolved]

NARRATIVE: CASE EVENT DATE: 20210129
